FAERS Safety Report 6753151-0 (Version None)
Quarter: 2010Q2

REPORT INFORMATION
  Report Type: 
  Country: None (occurrence: None)
  Receive Date: 20100603
  Receipt Date: 20100524
  Transmission Date: 20101027
  Serious: Yes (Other)
  Sender: FDA-Public Use
  Company Number: US-PFIZER INC-2010055639

PATIENT
  Sex: Female
  Weight: 57.596 kg

DRUGS (2)
  1. SUTENT [Suspect]
     Indication: RENAL CANCER
     Dosage: 50 MG, 1X/DAY
     Route: 048
     Dates: start: 20100407, end: 20100420
  2. SUTENT [Suspect]

REACTIONS (2)
  - DEPRESSED MOOD [None]
  - EATING DISORDER [None]
